FAERS Safety Report 17129790 (Version 1)
Quarter: 2019Q4

REPORT INFORMATION
  Report Type: Spontaneous
  Country: NO (occurrence: NO)
  Receive Date: 20191209
  Receipt Date: 20191209
  Transmission Date: 20200122
  Serious: Yes (Other)
  Sender: FDA-Public Use
  Company Number: NO-MYLANLABS-2019M1119707

PATIENT
  Age: 56 Year
  Sex: Female

DRUGS (1)
  1. LETROZOLE. [Suspect]
     Active Substance: LETROZOLE
     Indication: BREAST CANCER METASTATIC
     Dosage: UNK
     Route: 065
     Dates: start: 201404

REACTIONS (3)
  - Breast cancer recurrent [Unknown]
  - Metastases to pleura [Unknown]
  - Pleural effusion [Unknown]

NARRATIVE: CASE EVENT DATE: 201511
